FAERS Safety Report 9455910 (Version 5)
Quarter: 2013Q4

REPORT INFORMATION
  Report Type: Spontaneous
  Country: US (occurrence: US)
  Receive Date: 20130813
  Receipt Date: 20131024
  Transmission Date: 20140711
  Serious: Yes (Other)
  Sender: FDA-Public Use
  Company Number: US-009507513-1308USA004920

PATIENT
  Age: 53 Year
  Sex: Male
  Weight: 83.9 kg

DRUGS (5)
  1. REBETOL [Suspect]
     Indication: HEPATITIS C
     Dosage: 3 IN THE MORNING AND 3 AT NIGHT
     Route: 048
     Dates: start: 20130802
  2. REBETOL [Suspect]
     Dosage: 2 IN THE MORNING AND TWO AT NIGHT
     Dates: start: 2013
  3. REBETOL [Suspect]
     Dosage: 3 IN THE MORNING AND 3 AT NIGHT
     Dates: start: 2013
  4. PEGASYS [Suspect]
     Indication: HEPATITIS C
     Dosage: UNK
     Route: 048
     Dates: start: 20130802
  5. VICTRELIS [Suspect]
     Indication: HEPATITIS C
     Dosage: UNK
     Dates: start: 20130830

REACTIONS (39)
  - Loss of consciousness [Recovering/Resolving]
  - Influenza like illness [Unknown]
  - Fatigue [Unknown]
  - Headache [Unknown]
  - Salivary hypersecretion [Recovering/Resolving]
  - Vomiting [Recovering/Resolving]
  - Fatigue [Unknown]
  - Fatigue [Unknown]
  - Influenza like illness [Unknown]
  - Pain [Unknown]
  - Headache [Unknown]
  - Asthenia [Unknown]
  - Insomnia [Recovering/Resolving]
  - Blood glucose increased [Recovering/Resolving]
  - Abdominal discomfort [Recovering/Resolving]
  - Nausea [Recovering/Resolving]
  - Dizziness [Not Recovered/Not Resolved]
  - Dizziness [Not Recovered/Not Resolved]
  - Fall [Recovering/Resolving]
  - Asthenia [Recovering/Resolving]
  - Head injury [Recovering/Resolving]
  - Eye injury [Recovering/Resolving]
  - Asthenia [Unknown]
  - Fatigue [Unknown]
  - Drug dose omission [Unknown]
  - Decreased appetite [Unknown]
  - Weight decreased [Unknown]
  - Injection site rash [Unknown]
  - Dysgeusia [Unknown]
  - Depression [Unknown]
  - Mood swings [Unknown]
  - Irritability [Unknown]
  - Pollakiuria [Unknown]
  - Dizziness exertional [Unknown]
  - Headache [Unknown]
  - Anxiety [Unknown]
  - Dyspnoea [Unknown]
  - Rash [Unknown]
  - Anaemia [Unknown]
